FAERS Safety Report 17032995 (Version 8)
Quarter: 2021Q3

REPORT INFORMATION
  Report Type: Report from Study
  Country: AT (occurrence: AT)
  Receive Date: 20191114
  Receipt Date: 20210803
  Transmission Date: 20211014
  Serious: Yes (Hospitalization, Other)
  Sender: FDA-Public Use
  Company Number: AT-MYLANLABS-2019M1109177

PATIENT
  Age: 40 Year
  Sex: Female
  Weight: 60 kg

DRUGS (19)
  1. ZOFRAN [Concomitant]
     Active Substance: ONDANSETRON HYDROCHLORIDE
     Dosage: UNK ONGOING ?NOT CHECKED
     Route: 065
     Dates: end: 20190719
  2. TRASTUZUMAB. [Suspect]
     Active Substance: TRASTUZUMAB
     Indication: HER2 POSITIVE BREAST CANCER
     Dosage: ON 19/JUL/2019, MOST RECENT DOSE
     Route: 042
     Dates: start: 20190222, end: 20190719
  3. PERTUZUMAB. [Suspect]
     Active Substance: PERTUZUMAB
     Indication: BREAST CANCER METASTATIC
     Dosage: 840 MILLIGRAM/KILOGRAM, 3XW MOST RECENT DOSE PRIOR TO THE EVENT: 17/MAY/2018
     Route: 042
     Dates: start: 20180425
  4. FORTECORTIN                        /00016001/ [Concomitant]
     Active Substance: DEXAMETHASONE
     Dosage: UNK ONGOING ? NOT CHECKED
     Route: 065
     Dates: start: 20180426, end: 20180817
  5. PENTASA [Concomitant]
     Active Substance: MESALAMINE
     Dosage: UNK ONGOING ? NOT CHECKED
     Route: 065
     Dates: start: 20191116
  6. TAXOTERE [Suspect]
     Active Substance: DOCETAXEL
     Indication: BREAST CANCER METASTATIC
     Dosage: 75 MILLIGRAM/SQ. METER, Q3W
     Route: 042
     Dates: start: 20180426, end: 20180817
  7. CAPECITABINE. [Suspect]
     Active Substance: CAPECITABINE
     Indication: BREAST CANCER METASTATIC
     Dosage: 500 MILLIGRAM
     Route: 048
     Dates: start: 20190724
  8. EMEND [Concomitant]
     Active Substance: APREPITANT
     Dosage: UNK
     Dates: start: 20180426, end: 20180817
  9. DOCETAXEL. [Suspect]
     Active Substance: DOCETAXEL
     Indication: BREAST CANCER METASTATIC
     Dosage: 75 MILLIGRAM/SQ. METER, Q3W
     Route: 042
     Dates: start: 20180426, end: 20180817
  10. DIBONDRIN [Concomitant]
     Active Substance: DIPHENHYDRAMINE HYDROCHLORIDE
     Dosage: UNK
     Dates: start: 20180426, end: 20180817
  11. XGEVA [Suspect]
     Active Substance: DENOSUMAB
     Indication: BREAST CANCER METASTATIC
     Dosage: UNK
     Route: 065
     Dates: start: 20180618, end: 20191116
  12. ENTEROBENE [Concomitant]
     Indication: DIARRHOEA
     Dosage: UNK ONGOING ?NOT CHECKED
     Route: 065
     Dates: start: 20180611, end: 20191116
  13. ZOFRAN [Concomitant]
     Active Substance: ONDANSETRON HYDROCHLORIDE
     Dosage: UNK
     Dates: start: 20180426, end: 20180817
  14. DRONABINOL. [Concomitant]
     Active Substance: DRONABINOL
     Dosage: UNK ONGOING ?NOT CHECKED
     Dates: start: 20191116
  15. ULSAL [Concomitant]
     Active Substance: RANITIDINE HYDROCHLORIDE
     Dosage: UNK
     Dates: start: 20180426, end: 20180817
  16. TRASTUZUMAB. [Suspect]
     Active Substance: TRASTUZUMAB
     Dosage: MOST RECENT DOSE PRIOR TO EVENT: 17/MAY/2018 MOST RECENT DOSE PRIOR TO EVENT: 25/APR/2018
     Route: 042
     Dates: start: 20180425
  17. XGEVA [Suspect]
     Active Substance: DENOSUMAB
     Indication: BREAST CANCER METASTATIC
     Dosage: 120 MILLIGRAM, 4XW
     Route: 058
     Dates: start: 20180502
  18. PANTOLOC                           /01263201/ [Concomitant]
     Active Substance: PANTOPRAZOLE SODIUM
     Dosage: UNK ONGOING CHECKED
     Route: 065
     Dates: start: 20191116
  19. CIPROXIN                           /00697201/ [Concomitant]
     Active Substance: CIPROFLOXACIN
     Dosage: ONGOING, NOT CHECKED
     Dates: end: 20191110

REACTIONS (12)
  - Abdominal distension [Not Recovered/Not Resolved]
  - Anxiety [Recovered/Resolved]
  - Headache [Not Recovered/Not Resolved]
  - Fistula [Recovered/Resolved]
  - Hypokalaemia [Not Recovered/Not Resolved]
  - Thoracic vertebral fracture [Not Recovered/Not Resolved]
  - Weight decreased [Recovered/Resolved]
  - Diarrhoea [Not Recovered/Not Resolved]
  - General physical health deterioration [Recovered/Resolved]
  - Dyspnoea [Not Recovered/Not Resolved]
  - Vomiting [Not Recovered/Not Resolved]
  - Oedema peripheral [Not Recovered/Not Resolved]

NARRATIVE: CASE EVENT DATE: 20180611
